FAERS Safety Report 22129179 (Version 5)
Quarter: 2023Q2

REPORT INFORMATION
  Report Type: Spontaneous
  Country: US (occurrence: US)
  Receive Date: 20230323
  Receipt Date: 20230619
  Transmission Date: 20230722
  Serious: Yes (Other)
  Sender: FDA-Public Use
  Company Number: US-BRISTOL-MYERS SQUIBB COMPANY-2023-040136

PATIENT
  Age: 90 Year
  Sex: Female
  Weight: 74.4 kg

DRUGS (1)
  1. POMALYST [Suspect]
     Active Substance: POMALIDOMIDE
     Indication: Plasma cell myeloma
     Dosage: DAILY X 21 DAYS; 1 DAILY FOR 21 DAYS, 7 DAYS OFF
     Route: 048
     Dates: start: 202206

REACTIONS (5)
  - Brain fog [Unknown]
  - Thrombosis [Not Recovered/Not Resolved]
  - Dizziness [Unknown]
  - Rash macular [Unknown]
  - Muscle spasms [Unknown]

NARRATIVE: CASE EVENT DATE: 20230218
